FAERS Safety Report 22855590 (Version 3)
Quarter: 2023Q4

REPORT INFORMATION
  Report Type: Report from Study
  Country: US (occurrence: US)
  Receive Date: 20230823
  Receipt Date: 20231221
  Transmission Date: 20240110
  Serious: Yes (Other)
  Sender: FDA-Public Use
  Company Number: US-ABBVIE-5374772

PATIENT
  Age: 67 Year
  Sex: Female
  Weight: 79 kg

DRUGS (13)
  1. HUMIRA [Suspect]
     Active Substance: ADALIMUMAB
     Indication: Crohn^s disease
     Dosage: FORM STRENGTH WAS 40 MILLIGRAMS
     Route: 058
     Dates: start: 20200812
  2. HUMIRA [Suspect]
     Active Substance: ADALIMUMAB
     Dosage: FORM STRENGTH WAS 40 MILLIGRAMS
     Route: 058
     Dates: start: 2019
  3. HUMIRA [Suspect]
     Active Substance: ADALIMUMAB
     Dosage: FORM STRENGTH WAS 40 MILLIGRAMS
     Route: 058
  4. HUMIRA [Suspect]
     Active Substance: ADALIMUMAB
     Dosage: FORM STRENGTH WAS 40 MILLIGRAMS
     Route: 058
  5. PROMETHAZINE [Concomitant]
     Active Substance: PROMETHAZINE HYDROCHLORIDE
     Indication: Impaired gastric emptying
     Dates: start: 20200812, end: 20220120
  6. LOSARTAN [Concomitant]
     Active Substance: LOSARTAN
     Indication: Hypertension
     Route: 050
     Dates: start: 2020
  7. FAMOTIDINE [Concomitant]
     Active Substance: FAMOTIDINE
     Indication: Gastrooesophageal reflux disease
     Dosage: FORM STRENGTH WAS 40 MILLIGRAMS
     Route: 048
     Dates: start: 20200812, end: 20231010
  8. FAMOTIDINE [Concomitant]
     Active Substance: FAMOTIDINE
     Indication: Gastrooesophageal reflux disease
     Dosage: TIME INTERVAL: 0.33333333 DAYS: FORM STRENGTH WAS 40 MILLIGRAMS
     Route: 050
     Dates: start: 2017
  9. ALBUTEROL [Concomitant]
     Active Substance: ALBUTEROL
     Indication: Asthma
     Dosage: DOSAGE: 18 GM FREQUENY: UNK
     Route: 048
     Dates: start: 1990
  10. REGLAN [Concomitant]
     Active Substance: METOCLOPRAMIDE HYDROCHLORIDE
     Indication: Impaired gastric emptying
     Route: 050
     Dates: start: 20200812
  11. SYMBICORT [Concomitant]
     Active Substance: BUDESONIDE\FORMOTEROL FUMARATE DIHYDRATE
     Indication: Asthma
     Dosage: 160/4.5 MCG?2*5 DAILY
     Route: 048
     Dates: start: 1995
  12. PANTOPRAZOLE [Concomitant]
     Active Substance: PANTOPRAZOLE
     Indication: Gastrooesophageal reflux disease
     Route: 048
     Dates: start: 20220926, end: 20231007
  13. PANTOPRAZOLE [Concomitant]
     Active Substance: PANTOPRAZOLE
     Indication: Gastrooesophageal reflux disease
     Dosage: TIME INTERVAL: 0.33333333 DAYS
     Route: 048
     Dates: start: 1997

REACTIONS (5)
  - Choking [Recovered/Resolved with Sequelae]
  - Vomiting [Recovered/Resolved with Sequelae]
  - Nausea [Recovered/Resolved with Sequelae]
  - Dyspnoea [Recovered/Resolved with Sequelae]
  - Chronic obstructive pulmonary disease [Unknown]

NARRATIVE: CASE EVENT DATE: 20210225
